FAERS Safety Report 7806355-X (Version None)
Quarter: 2011Q4

REPORT INFORMATION
  Report Type: 
  Country: None (occurrence: None)
  Receive Date: 20111011
  Receipt Date: 20110928
  Transmission Date: 20120403
  Serious: Yes (Other)
  Sender: FDA-Public Use
  Company Number: FR-ELI_LILLY_AND_COMPANY-FR201109008781

PATIENT
  Age: 60 Year
  Sex: Female

DRUGS (2)
  1. ANAFRANIL [Concomitant]
     Dosage: 0.5 DF, QD
     Route: 048
  2. ZYPREXA [Suspect]
     Indication: PSYCHOTIC DISORDER
     Dosage: 5 MG, QD
     Route: 048

REACTIONS (1)
  - NEUTROPENIA [None]
